FAERS Safety Report 5044350-7 (Version None)
Quarter: 2006Q2

REPORT INFORMATION
  Report Type: 
  Country: None (occurrence: None)
  Receive Date: 20060629
  Receipt Date: 20060616
  Transmission Date: 20061013
  Serious: Yes (Other)
  Sender: FDA-Public Use
  Company Number: 2006078131

PATIENT
  Sex: Male

DRUGS (1)
  1. LYRICA [Suspect]
     Indication: EPILEPSY
     Dosage: 300 MG (150 MG, 2 IN 1 D) ORAL
     Route: 048
     Dates: start: 20060114, end: 20060614

REACTIONS (5)
  - DRUG ERUPTION [None]
  - DRUG HYPERSENSITIVITY [None]
  - DYSURIA [None]
  - PRURITUS [None]
  - RASH [None]
